FAERS Safety Report 8401152-9 (Version None)
Quarter: 2012Q2

REPORT INFORMATION
  Report Type: 
  Country: None (occurrence: None)
  Receive Date: 20120525
  Receipt Date: 20120515
  Transmission Date: 20120825
  Serious: Yes (Other)
  Sender: FDA-Public Use
  Company Number: 1290528

PATIENT
  Age: 56 Year
  Sex: Male
  Weight: 82 kg

DRUGS (12)
  1. ATORVASTATIN [Concomitant]
  2. CARBOPLATIN [Suspect]
     Indication: NASAL SINUS CANCER
     Dosage: 700 MG, ACCORDING TO COURSE,  INTRAVENOUS (NOT OTHERWISE SPECIFIED)
     Route: 042
     Dates: start: 20120208, end: 20120208
  3. SOLU-MEDROL [Concomitant]
  4. NEULASTA [Concomitant]
  5. METOPROLOL TARTRATE [Concomitant]
  6. EMEND [Concomitant]
  7. ONDANSETRON [Concomitant]
  8. METFORMIN HCL [Concomitant]
  9. RANITIDINE [Concomitant]
  10. CLOPIDOGREL BISULFATE AND ASPIRIN [Concomitant]
  11. PACLITAXEL [Suspect]
     Indication: NASAL SINUS CANCER
     Dosage: 348 MG, ACCORDING TO COURSE, INTRAVENOUS (NOT OTHERWISE SPECIFIED)
     Route: 042
     Dates: start: 20120208, end: 20120208
  12. (DIAMICRON) [Concomitant]

REACTIONS (2)
  - PARAESTHESIA [None]
  - MYALGIA [None]
